FAERS Safety Report 6469712-2 (Version None)
Quarter: 2009Q4

REPORT INFORMATION
  Report Type: 
  Country: None (occurrence: None)
  Receive Date: 20091203
  Receipt Date: 20080102
  Transmission Date: 20100525
  Serious: Yes (Hospitalization)
  Sender: FDA-Public Use
  Company Number: US-ELI_LILLY_AND_COMPANY-US200710002496

PATIENT
  Sex: Female
  Weight: 67.346 kg

DRUGS (12)
  1. SOMATROPIN [Suspect]
     Indication: LYMPHOCYTIC HYPOPHYSITIS
     Dosage: 0.33 MG, UNK
     Route: 058
     Dates: start: 20040811, end: 20070901
  2. SOMATROPIN [Suspect]
     Dosage: 0.4 MG, DAILY (1/D)
     Route: 058
     Dates: start: 20070901
  3. LEVOTHYROXINE SODIUM [Concomitant]
     Dosage: 80 UG, DAILY (1/D)
  4. CYTOMEL [Concomitant]
     Dosage: 55 UG, DAILY (1/D)
  5. VITAMIN D [Concomitant]
     Dosage: 50000 U, WEEKLY (1/W)
  6. CALTRATE PLUS [Concomitant]
     Dosage: UNK, 2/D
  7. K-DUR [Concomitant]
     Dosage: 20 MEQ, DAILY (1/D)
  8. DEMADEX [Concomitant]
     Dosage: 40 MG, QOD
  9. DEMADEX [Concomitant]
     Dosage: 20 MG, QOD
  10. XANAX [Concomitant]
     Dosage: 1 MG, 4/D
  11. FISH OIL [Concomitant]
     Dosage: 4 G, DAILY (1/D)
  12. ACTONEL [Concomitant]
     Dosage: 30 MG, UNK

REACTIONS (1)
  - BENIGN NEOPLASM OF THYROID GLAND [None]
